FAERS Safety Report 23260785 (Version 2)
Quarter: 2023Q4

REPORT INFORMATION
  Report Type: Other
  Country: JP (occurrence: JP)
  Receive Date: 20231205
  Receipt Date: 20231207
  Transmission Date: 20240109
  Serious: Yes (Other)
  Sender: FDA-Public Use
  Company Number: JP-CHUGAI-2023043031AA

PATIENT
  Age: 55 Year
  Sex: Female
  Weight: 59.5 kg

DRUGS (3)
  1. TECENTRIQ [Suspect]
     Active Substance: ATEZOLIZUMAB
     Indication: Triple negative breast cancer
     Route: 065
     Dates: start: 20230522
  2. PACLITAXEL [Suspect]
     Active Substance: PACLITAXEL
     Indication: Triple negative breast cancer
     Route: 065
     Dates: start: 20230522
  3. PACLITAXEL [Suspect]
     Active Substance: PACLITAXEL
     Dosage: 75 MILLIGRAM/SQ. METER
     Route: 065
     Dates: start: 20230619

REACTIONS (5)
  - Hyperthyroidism [Recovered/Resolved with Sequelae]
  - Hypothyroidism [Recovering/Resolving]
  - Pneumonitis [Unknown]
  - Neuropathy peripheral [Not Recovered/Not Resolved]
  - Thyroiditis [Unknown]

NARRATIVE: CASE EVENT DATE: 20230605
